FAERS Safety Report 4376754-X (Version None)
Quarter: 2004Q2

REPORT INFORMATION
  Report Type: 
  Country: None (occurrence: None)
  Receive Date: 20040609
  Receipt Date: 20040503
  Transmission Date: 20050107
  Serious: Yes (Other)
  Sender: FDA-Public Use
  Company Number: 2004204378US

PATIENT
  Age: 65 Year
  Sex: Female
  Weight: 61.2 kg

DRUGS (4)
  1. BEXTRA [Suspect]
     Indication: ARTHRALGIA
     Dosage: 10 MG, QD, ORAL
     Route: 048
     Dates: start: 20031211, end: 20040220
  2. ZOLOFT [Concomitant]
  3. CALCIUM MAGNESIUM ZINC [Concomitant]
  4. METHYLSULFONYLMETHANE [Concomitant]

REACTIONS (2)
  - FLUID RETENTION [None]
  - HYPERTENSION [None]
